FAERS Safety Report 6695025-X (Version None)
Quarter: 2010Q2

REPORT INFORMATION
  Report Type: 
  Country: None (occurrence: None)
  Receive Date: 20100423
  Receipt Date: 20100413
  Transmission Date: 20101027
  Serious: Yes (Other)
  Sender: FDA-Public Use
  Company Number: PHHY2010GB25001

PATIENT
  Sex: Male

DRUGS (3)
  1. CLOZARIL [Suspect]
     Indication: SCHIZOPHRENIA
     Dosage: 350 MG / DAY
     Dates: start: 20100114
  2. GABAPENTIN [Concomitant]
  3. BUPRENORPHINE [Concomitant]

REACTIONS (5)
  - ANTIPSYCHOTIC DRUG LEVEL BELOW THERAPEUTIC [None]
  - ERECTILE DYSFUNCTION [None]
  - SALIVARY HYPERSECRETION [None]
  - SEDATION [None]
  - SENSATION OF HEAVINESS [None]
